FAERS Safety Report 17878258 (Version 2)
Quarter: 2021Q3

REPORT INFORMATION
  Report Type: Spontaneous
  Country: PL (occurrence: PL)
  Receive Date: 20200609
  Receipt Date: 20210705
  Transmission Date: 20211014
  Serious: Yes (Hospitalization, Other)
  Sender: FDA-Public Use
  Company Number: PL-AUROBINDO-AUR-APL-2020-027729

PATIENT
  Age: 9 Year
  Sex: Male

DRUGS (12)
  1. ONDANSETRON [Suspect]
     Active Substance: ONDANSETRON
     Indication: ANTIBIOTIC THERAPY
  2. ETAMSYLATE [Suspect]
     Active Substance: ETHAMSYLATE
     Indication: HENOCH-SCHONLEIN PURPURA
     Dosage: UNK
     Route: 065
  3. IBUPROFEN. [Suspect]
     Active Substance: IBUPROFEN
     Indication: ANTIBIOTIC THERAPY
  4. BIFIDOBACTERIUM LACTIS [Concomitant]
     Active Substance: BIFIDOBACTERIUM ANIMALIS LACTIS
     Indication: ANTIBIOTIC THERAPY
     Dosage: UNK
     Route: 065
  5. AMOXICILLIN+CLAVULANIC ACID [Suspect]
     Active Substance: AMOXICILLIN\CLAVULANIC ACID
     Indication: HENOCH-SCHONLEIN PURPURA
     Dosage: UNK
     Route: 065
  6. HYDROCORTISONE. [Suspect]
     Active Substance: HYDROCORTISONE
     Indication: STEROID THERAPY
     Dosage: 10 MILLIGRAM/KILOGRAM, ONCE A DAY
     Route: 065
  7. ONDANSETRON [Suspect]
     Active Substance: ONDANSETRON
     Indication: HENOCH-SCHONLEIN PURPURA
     Dosage: UNK
     Route: 065
  8. VITAMIN C;RUTOSIDE [Suspect]
     Active Substance: ASCORBIC ACID\RUTIN
     Indication: HENOCH-SCHONLEIN PURPURA
     Dosage: UNK
     Route: 065
  9. IBUPROFEN. [Suspect]
     Active Substance: IBUPROFEN
     Indication: HENOCH-SCHONLEIN PURPURA
     Dosage: UNK
     Route: 065
  10. AMOXICILLIN+CLAVULANIC ACID [Suspect]
     Active Substance: AMOXICILLIN\CLAVULANIC ACID
     Indication: ANTIBIOTIC THERAPY
  11. ETAMSYLATE [Suspect]
     Active Substance: ETHAMSYLATE
     Indication: ANTIBIOTIC THERAPY
  12. VITAMIN C;RUTOSIDE [Suspect]
     Active Substance: ASCORBIC ACID\RUTIN
     Indication: ANTIBIOTIC THERAPY

REACTIONS (12)
  - Soft tissue swelling [Recovered/Resolved]
  - Drug ineffective for unapproved indication [Unknown]
  - Haematochezia [Recovered/Resolved]
  - Haematuria [Recovered/Resolved]
  - Diarrhoea haemorrhagic [Unknown]
  - Condition aggravated [Recovered/Resolved]
  - Papule [Recovered/Resolved]
  - Gastrointestinal inflammation [Unknown]
  - Hypertension [Recovered/Resolved]
  - Nephropathy [Recovered/Resolved]
  - Proteinuria [Recovered/Resolved]
  - Off label use [Unknown]
